FAERS Safety Report 19821802 (Version 1)
Quarter: 2021Q3

REPORT INFORMATION
  Report Type: Spontaneous
  Country: US (occurrence: US)
  Receive Date: 20210913
  Receipt Date: 20210913
  Transmission Date: 20211014
  Serious: Yes (Life-Threatening, Hospitalization)
  Sender: FDA-Public Use
  Company Number: None

PATIENT
  Age: 64 Year
  Sex: Female
  Weight: 86 kg

DRUGS (11)
  1. DEXAMETHASONE 20 MG DAILY [Concomitant]
     Dates: start: 20210827
  2. ZINC SULFATE 220 MG [Concomitant]
  3. BARICITINIB. [Suspect]
     Active Substance: BARICITINIB
     Indication: COVID-19
     Route: 048
     Dates: start: 20210829, end: 20210912
  4. FUROSEMIDE 40 MG [Concomitant]
     Active Substance: FUROSEMIDE
     Dates: start: 20210828
  5. CHOLECALCIFEROL 1000 IU [Concomitant]
     Dates: start: 20210829
  6. ASCORBIC ACID 1000 MG [Concomitant]
     Dates: start: 20210829
  7. ENOXAPRIN 40 MG DAILY [Concomitant]
     Dates: start: 20210827
  8. REMDESEVIR [Concomitant]
     Active Substance: REMDESIVIR
     Dates: start: 20210828
  9. MIRALAX 17 G [Concomitant]
     Dates: start: 20210902
  10. ESCITALOPRAM [Concomitant]
     Active Substance: ESCITALOPRAM OXALATE
     Dates: start: 20210827
  11. ADMELOG [Concomitant]
     Active Substance: INSULIN LISPRO
     Dates: start: 20210828

REACTIONS (1)
  - Pulmonary embolism [None]

NARRATIVE: CASE EVENT DATE: 20210912
